FAERS Safety Report 8467042-0 (Version None)
Quarter: 2012Q2

REPORT INFORMATION
  Report Type: 
  Country: None (occurrence: None)
  Receive Date: 20120626
  Receipt Date: 20120613
  Transmission Date: 20120825
  Serious: No
  Sender: FDA-Public Use
  Company Number: US-ASTRAZENECA-2010SE33050

PATIENT
  Sex: Female

DRUGS (3)
  1. CRESTOR [Suspect]
     Route: 048
  2. ZETIA [Suspect]
     Route: 065
  3. IBUPROFEN [Concomitant]

REACTIONS (5)
  - HAEMORRHAGE [None]
  - ANAEMIA [None]
  - HAEMOGLOBIN DECREASED [None]
  - HAEMATOCHEZIA [None]
  - INTENTIONAL DRUG MISUSE [None]
